FAERS Safety Report 15905937 (Version 2)
Quarter: 2019Q1

REPORT INFORMATION
  Report Type: Report from Study
  Country: BE (occurrence: BE)
  Receive Date: 20190204
  Receipt Date: 20190307
  Transmission Date: 20190417
  Serious: Yes (Other)
  Sender: FDA-Public Use
  Company Number: BE-MYLANLABS-2018M1028326

PATIENT
  Age: 70 Year
  Sex: Female
  Weight: 61.5 kg

DRUGS (11)
  1. PACLITAXEL. [Suspect]
     Active Substance: PACLITAXEL
     Dosage: 132 MILLIGRAM/SQ. METER, QW
     Route: 042
     Dates: start: 20171102
  2. AVASTIN [Suspect]
     Active Substance: BEVACIZUMAB
     Indication: OVARIAN CANCER
     Dosage: 1 DF, Q3W
     Route: 042
     Dates: start: 20171102
  3. AVASTIN [Suspect]
     Active Substance: BEVACIZUMAB
     Dosage: 1027 MILLIGRAM, Q3W
     Route: 042
     Dates: start: 20180712
  4. CARBOPLATIN. [Suspect]
     Active Substance: CARBOPLATIN
     Indication: OVARIAN CANCER
     Dosage: 1 DF, Q3W,DOSE: 6 AUC
     Route: 042
     Dates: start: 20171102, end: 20180329
  5. AVASTIN [Suspect]
     Active Substance: BEVACIZUMAB
     Dosage: 975 MILLIGRAM
     Route: 042
     Dates: start: 20171123
  6. PACLITAXEL. [Suspect]
     Active Substance: PACLITAXEL
     Indication: OVARIAN CANCER
     Dosage: 1 DF, QW
     Route: 042
  7. PACLITAXEL. [Suspect]
     Active Substance: PACLITAXEL
     Dosage: 133.6 MILLIGRAM/SQ. METER, QW
     Route: 042
     Dates: start: 20171123, end: 20180412
  8. AVASTIN [Suspect]
     Active Substance: BEVACIZUMAB
     Dosage: 960 MILLIGRAM, Q3W
     Route: 042
     Dates: start: 20171102
  9. DAFALGAN [Concomitant]
     Active Substance: ACETAMINOPHEN
     Dosage: AS NEEDED
     Dates: start: 20180131
  10. BEFACT                             /00527001/ [Concomitant]
     Active Substance: CYANOCOBALAMIN\PYRIDOXINE\THIAMINE
     Dosage: UNK
     Route: 065
     Dates: start: 20180211
  11. VOLTAREN [Concomitant]
     Active Substance: DICLOFENAC SODIUM
     Dosage: 50 MILLIGRAM, QD
     Route: 048
     Dates: start: 20171109

REACTIONS (13)
  - Fall [Unknown]
  - Hypertension [Unknown]
  - Abdominal pain [Recovered/Resolved]
  - Anorectal discomfort [Unknown]
  - Suspected transmission of an infectious agent via product [Unknown]
  - Chest pain [Not Recovered/Not Resolved]
  - Anal pruritus [Recovered/Resolved]
  - Neuropathy peripheral [Not Recovered/Not Resolved]
  - Fatigue [Recovered/Resolved]
  - Oedema peripheral [Recovered/Resolved]
  - Aphthous ulcer [Recovered/Resolved]
  - Ecchymosis [Recovered/Resolved]
  - Back pain [Not Recovered/Not Resolved]

NARRATIVE: CASE EVENT DATE: 20171102
